FAERS Safety Report 5710877-5 (Version None)
Quarter: 2008Q2

REPORT INFORMATION
  Report Type: 
  Country: None (occurrence: None)
  Receive Date: 20080421
  Receipt Date: 20080409
  Transmission Date: 20081010
  Serious: Yes (Other)
  Sender: FDA-Public Use
  Company Number: PHHY2008AU03796

PATIENT
  Age: 61 Year
  Sex: Female

DRUGS (2)
  1. ESTRADERM [Suspect]
     Indication: HORMONE REPLACEMENT THERAPY
     Dosage: 100 UNK, UNK
     Route: 061
     Dates: start: 19940101
  2. CRESTOR [Concomitant]
     Dosage: 10 MG, QD
     Dates: start: 20070724

REACTIONS (3)
  - HOT FLUSH [None]
  - HYSTEROSALPINGO-OOPHORECTOMY [None]
  - INCONTINENCE [None]
